FAERS Safety Report 13752745 (Version 2)
Quarter: 2017Q3

REPORT INFORMATION
  Report Type: Spontaneous
  Country: JP (occurrence: JP)
  Receive Date: 20170714
  Receipt Date: 20170726
  Transmission Date: 20171127
  Serious: Yes (Death, Hospitalization)
  Sender: FDA-Public Use
  Company Number: JP-EISAI MEDICAL RESEARCH-EC-2017-029221

PATIENT
  Age: 53 Year
  Sex: Male

DRUGS (4)
  1. FYCOMPA [Suspect]
     Active Substance: PERAMPANEL
     Route: 048
     Dates: start: 20170613, end: 201706
  2. FYCOMPA [Suspect]
     Active Substance: PERAMPANEL
     Indication: EPILEPSY
     Route: 048
     Dates: start: 20170605, end: 20170612
  3. LEVETIRACETAM. [Concomitant]
     Active Substance: LEVETIRACETAM
     Indication: EPILEPSY
     Dosage: UNKNOWN
     Route: 065
  4. CARBAMAZEPINE. [Concomitant]
     Active Substance: CARBAMAZEPINE
     Indication: EPILEPSY
     Dosage: UNKNOWN
     Route: 065

REACTIONS (1)
  - Somnolence [Not Recovered/Not Resolved]

NARRATIVE: CASE EVENT DATE: 20170613
